FAERS Safety Report 8039281-4 (Version None)
Quarter: 2012Q1

REPORT INFORMATION
  Report Type: 
  Country: None (occurrence: None)
  Receive Date: 20120111
  Receipt Date: 20111215
  Transmission Date: 20120608
  Serious: No
  Sender: FDA-Public Use
  Company Number: US-AMGEN-USASP2011042708

PATIENT
  Age: 62 Year
  Sex: Male

DRUGS (1)
  1. ENBREL [Suspect]
     Indication: RHEUMATOID ARTHRITIS
     Dosage: 25 MG, 2 TIMES/WK
     Dates: start: 20110812

REACTIONS (7)
  - DECREASED APPETITE [None]
  - INJECTION SITE PAIN [None]
  - BACK PAIN [None]
  - CHEST PAIN [None]
  - FURUNCLE [None]
  - HEADACHE [None]
  - RHEUMATOID ARTHRITIS [None]
